FAERS Safety Report 10998679 (Version 1)
Quarter: 2015Q2

REPORT INFORMATION
  Report Type: Spontaneous
  Country: CZ (occurrence: CZ)
  Receive Date: 20150408
  Receipt Date: 20150408
  Transmission Date: 20150821
  Serious: Yes (Other)
  Sender: FDA-Public Use
  Company Number: CZ-ACTAVIS-2015-06982

PATIENT
  Age: 61 Year
  Sex: Female
  Weight: 86 kg

DRUGS (2)
  1. VANCOMYCIN (UNKNOWN) [Interacting]
     Active Substance: VANCOMYCIN
     Indication: ENDOCARDITIS
     Dosage: 1000 MG, BID
     Route: 041
  2. GENTAMICIN (UNKNOWN) [Suspect]
     Active Substance: GENTAMICIN
     Indication: ENDOCARDITIS
     Dosage: 240 MG, DAILY
     Route: 041

REACTIONS (3)
  - Renal impairment [Unknown]
  - Antibiotic level above therapeutic [Unknown]
  - Drug interaction [Unknown]
